FAERS Safety Report 8362163-5 (Version None)
Quarter: 2012Q2

REPORT INFORMATION
  Report Type: 
  Country: None (occurrence: None)
  Receive Date: 20120515
  Receipt Date: 20120511
  Transmission Date: 20120825
  Serious: Yes (Hospitalization)
  Sender: FDA-Public Use
  Company Number: US-GILEAD-2012-0054450

PATIENT
  Sex: Female

DRUGS (1)
  1. LETAIRIS [Suspect]
     Indication: PULMONARY HYPERTENSION
     Dosage: 5 MG, UNK
     Route: 048
     Dates: start: 20120324

REACTIONS (6)
  - DIARRHOEA [None]
  - UNEVALUABLE EVENT [None]
  - GASTROINTESTINAL DISORDER [None]
  - VOMITING [None]
  - GASTROINTESTINAL ULCER [None]
  - HELICOBACTER INFECTION [None]
